FAERS Safety Report 5020805-6 (Version None)
Quarter: 2006Q2

REPORT INFORMATION
  Report Type: 
  Country: None (occurrence: None)
  Receive Date: 20060608
  Receipt Date: 20060530
  Transmission Date: 20061013
  Serious: Yes (Hospitalization, Other)
  Sender: FDA-Public Use
  Company Number: US-JNJFOC-20060300814

PATIENT
  Sex: Female
  Weight: 90.72 kg

DRUGS (7)
  1. REMICADE [Suspect]
     Route: 042
  2. REMICADE [Suspect]
     Indication: RHEUMATOID ARTHRITIS
     Route: 042
  3. METHOTREXATE [Concomitant]
     Indication: RHEUMATOID ARTHRITIS
     Route: 048
  4. PREVACID [Concomitant]
     Indication: GASTROOESOPHAGEAL REFLUX DISEASE
     Route: 048
  5. RESTORIL [Concomitant]
     Indication: INSOMNIA
     Dosage: DOSE+15 MG QHS
     Route: 048
  6. PLAQUENIL [Concomitant]
     Indication: RHEUMATOID ARTHRITIS
     Route: 048
  7. FOLIC ACID [Concomitant]
     Route: 048

REACTIONS (1)
  - RENAL CELL CARCINOMA STAGE UNSPECIFIED [None]
